FAERS Safety Report 7079322-4 (Version None)
Quarter: 2010Q4

REPORT INFORMATION
  Report Type: 
  Country: None (occurrence: None)
  Receive Date: 20101102
  Receipt Date: 20100122
  Transmission Date: 20110411
  Serious: No
  Sender: FDA-Public Use
  Company Number: A0841505A

PATIENT
  Age: 71 Year
  Sex: Female

DRUGS (2)
  1. RYTHMOL SR [Suspect]
     Indication: ATRIAL FIBRILLATION
     Dosage: 225MG TWICE PER DAY
     Route: 048
     Dates: start: 20090901
  2. NONE [Concomitant]

REACTIONS (2)
  - COGNITIVE DISORDER [None]
  - PRODUCT SOLUBILITY ABNORMAL [None]
